FAERS Safety Report 25720623 (Version 6)
Quarter: 2025Q4

REPORT INFORMATION
  Report Type: Report from Study
  Country: US (occurrence: US)
  Receive Date: 20250825
  Receipt Date: 20251121
  Transmission Date: 20260117
  Serious: Yes (Hospitalization)
  Sender: ABBVIE
  Company Number: US-ABBVIE-6427999

PATIENT
  Age: 47 Year
  Sex: Female
  Weight: 131.08 kg

DRUGS (16)
  1. SKYRIZI [Suspect]
     Active Substance: RISANKIZUMAB-RZAA
     Indication: Psoriatic arthropathy
     Dosage: STRENGTH 150MG/ML SOLUTION FOR INJECTION IN PRE-FILLED PEN?AT WEEK 0
     Route: 058
     Dates: start: 20250722, end: 20250722
  2. SKYRIZI [Suspect]
     Active Substance: RISANKIZUMAB-RZAA
     Dosage: STRENGTH 150MG/ML SOLUTION FOR INJECTION IN PRE-FILLED PEN?AT WEEK 4, THEN EVERY 12 WEEKS
     Route: 058
     Dates: start: 202508, end: 202508
  3. HYDROXYCHLOROQUINE [Concomitant]
     Active Substance: HYDROXYCHLOROQUINE
     Indication: Scleroderma
     Dosage: 400 MILLIGRAM
  4. HYDROXYCHLOROQUINE [Concomitant]
     Active Substance: HYDROXYCHLOROQUINE
     Indication: Scleroderma
     Dosage: 400 MILLIGRAM
  5. HYDROXYCHLOROQUINE [Concomitant]
     Active Substance: HYDROXYCHLOROQUINE
     Indication: Scleroderma
     Dosage: 400 MILLIGRAM
  6. DIAMOX SEQUELS [Concomitant]
     Active Substance: ACETAZOLAMIDE
     Indication: Nervous system disorder
  7. GABAPENTIN [Concomitant]
     Active Substance: GABAPENTIN
     Indication: Neuralgia
     Dosage: 600MG AND 300 MG
  8. GABAPENTIN [Concomitant]
     Active Substance: GABAPENTIN
     Indication: Neuralgia
     Dosage: 600MG AND 300 MG
  9. GABAPENTIN [Concomitant]
     Active Substance: GABAPENTIN
     Indication: Neuralgia
     Dosage: 600MG AND 300 MG
  10. NADOLOL [Concomitant]
     Active Substance: NADOLOL
     Indication: Migraine
     Dosage: 40 MILLIGRAM
  11. NADOLOL [Concomitant]
     Active Substance: NADOLOL
     Indication: Migraine
     Dosage: 40 MILLIGRAM
  12. NADOLOL [Concomitant]
     Active Substance: NADOLOL
     Indication: Migraine
     Dosage: 40 MILLIGRAM
  13. ZOFRAN [Concomitant]
     Active Substance: ONDANSETRON HYDROCHLORIDE
     Indication: Nausea
  14. LEVOTHYROXINE [Concomitant]
     Active Substance: LEVOTHYROXINE
     Indication: Product used for unknown indication
  15. RITUXIMAB [Concomitant]
     Active Substance: RITUXIMAB
     Indication: Product used for unknown indication
  16. REMICADE [Concomitant]
     Active Substance: INFLIXIMAB
     Indication: Product used for unknown indication

REACTIONS (6)
  - Medical device site erythema [Recovered/Resolved]
  - Procedural pain [Recovering/Resolving]
  - Pyrexia [Recovered/Resolved]
  - Staphylococcal infection [Recovered/Resolved]
  - Malaise [Recovered/Resolved]
  - Medical device site irritation [Recovered/Resolved]

NARRATIVE: CASE EVENT DATE: 20250807
